FAERS Safety Report 14332042 (Version 1)
Quarter: 2017Q4

REPORT INFORMATION
  Report Type: Spontaneous
  Country: US (occurrence: US)
  Receive Date: 20171227
  Receipt Date: 20171227
  Transmission Date: 20180321
  Serious: Yes (Other)
  Sender: FDA-Public Use
  Company Number: None

PATIENT
  Age: 22 Year
  Sex: Male
  Weight: 74.25 kg

DRUGS (12)
  1. CARVEDILOL. [Concomitant]
     Active Substance: CARVEDILOL
  2. BI-PAP MACHINE [Concomitant]
     Active Substance: DEVICE
  3. VITAMIN D [Concomitant]
     Active Substance: CHOLECALCIFEROL
  4. CALCIUM [Concomitant]
     Active Substance: CALCIUM
  5. COQ10 [Concomitant]
     Active Substance: UBIDECARENONE
  6. MENS DAILY VITAMIN [Concomitant]
  7. LISINOPRIL. [Concomitant]
     Active Substance: LISINOPRIL
  8. SPIRONOLACTONE. [Concomitant]
     Active Substance: SPIRONOLACTONE
  9. FOSAMAX [Concomitant]
     Active Substance: ALENDRONATE SODIUM
  10. EMFLAZA [Suspect]
     Active Substance: DEFLAZACORT
     Indication: DUCHENNE MUSCULAR DYSTROPHY
     Dosage: ?          QUANTITY:1 TABLET(S);?
     Route: 048
  11. EXTERNAL SIP-VENT DAILY [Concomitant]
  12. METFORMIN [Concomitant]
     Active Substance: METFORMIN HYDROCHLORIDE

REACTIONS (2)
  - Emotional disorder [None]
  - Personality change [None]

NARRATIVE: CASE EVENT DATE: 20170801
